FAERS Safety Report 8905376 (Version 2)
Quarter: 2013Q1

REPORT INFORMATION
  Report Type: Spontaneous
  Country: US (occurrence: US)
  Receive Date: 20121113
  Receipt Date: 20130206
  Transmission Date: 20140127
  Serious: Yes (Other)
  Sender: FDA-Public Use
  Company Number: US-ELI_LILLY_AND_COMPANY-US201211003339

PATIENT
  Sex: Female
  Weight: 58.5 kg

DRUGS (7)
  1. ADCIRCA [Suspect]
     Dosage: 40 MG, QD
  2. LIPITOR [Concomitant]
     Indication: HYPERLIPIDAEMIA
     Dosage: 80 MG, QD
  3. LETAIRIS [Concomitant]
     Dosage: 10 MG, QD
  4. AMLODIPINE [Concomitant]
     Dosage: 5 MG, QD
  5. ASPIRIN [Concomitant]
     Dosage: 81 MG, QD
  6. ATENOLOL [Concomitant]
     Dosage: 12.5 MG, QD
  7. OXYGEN [Concomitant]

REACTIONS (2)
  - Blindness unilateral [Not Recovered/Not Resolved]
  - Cataract [Unknown]
